FAERS Safety Report 5604544-6 (Version None)
Quarter: 2008Q1

REPORT INFORMATION
  Report Type: 
  Country: None (occurrence: None)
  Receive Date: 20080123
  Receipt Date: 20080114
  Transmission Date: 20080703
  Serious: Yes (Death)
  Sender: FDA-Public Use
  Company Number: B0503089A

PATIENT
  Age: 54 Year
  Sex: Male

DRUGS (6)
  1. BUPROPION HYDROCHLORIDE [Suspect]
     Dosage: ORAL
     Route: 048
  2. RIVASTIGMINE HYDROG. TARTR (FORMULATION UNKNOWN) (RIVASTIGMINE HYDROG. [Suspect]
     Dosage: ORAL
     Route: 048
  3. ACAMPROSATE (FORMULATION UNKNOWN) (ACAMPROSATE) [Suspect]
     Dosage: ORAL
     Route: 048
  4. GABAPENTIN [Suspect]
     Dosage: ORAL
     Route: 048
  5. TRAZODONE HCL [Suspect]
     Dosage: ORAL
     Route: 048
  6. BENZODIAZEPINES (FORMULATION UNKNOWN) (BENZODIAZEPINES) [Suspect]
     Dosage: ORAL
     Route: 048

REACTIONS (1)
  - INTENTIONAL DRUG MISUSE [None]
